FAERS Safety Report 18247321 (Version 1)
Quarter: 2020Q3

REPORT INFORMATION
  Report Type: Spontaneous
  Country: BY (occurrence: BY)
  Receive Date: 20200909
  Receipt Date: 20200909
  Transmission Date: 20201103
  Serious: Yes (Other)
  Sender: FDA-Public Use
  Company Number: NVSC2020BY244834

PATIENT
  Age: 55 Year
  Sex: Female

DRUGS (22)
  1. DELAMANID [Suspect]
     Active Substance: DELAMANID
     Dosage: UNK
     Route: 048
     Dates: start: 20200212, end: 20200213
  2. CLOFAZIMINE [Suspect]
     Active Substance: CLOFAZIMINE
     Indication: TUBERCULOSIS
     Dosage: 100
     Route: 048
     Dates: start: 20191218, end: 20200206
  3. DELAMANID [Suspect]
     Active Substance: DELAMANID
     Indication: TUBERCULOSIS
     Dosage: UNK, QD (200)
     Route: 065
     Dates: start: 20191218, end: 20200206
  4. LINEZOLID. [Concomitant]
     Active Substance: LINEZOLID
     Dosage: UNK
     Route: 065
     Dates: start: 20200219
  5. DELAMANID [Suspect]
     Active Substance: DELAMANID
     Dosage: UNK
     Route: 048
     Dates: start: 20200219
  6. PYRIDOXIN [Concomitant]
     Active Substance: PYRIDOXINE
     Indication: PRODUCT USED FOR UNKNOWN INDICATION
     Dosage: 50 MG
     Route: 065
     Dates: start: 20191218
  7. NEVIRAPINE. [Concomitant]
     Active Substance: NEVIRAPINE
     Indication: PRODUCT USED FOR UNKNOWN INDICATION
     Dosage: 200 MG
     Route: 065
     Dates: start: 20191218, end: 20200108
  8. CYCLOSERINE. [Concomitant]
     Active Substance: CYCLOSERINE
     Indication: TUBERCULOSIS
     Dosage: UNK
     Route: 065
     Dates: start: 20191218, end: 20200206
  9. CYCLOSERINE. [Concomitant]
     Active Substance: CYCLOSERINE
     Dosage: UNK
     Route: 065
     Dates: start: 20200212, end: 20200213
  10. CYCLOSERINE. [Concomitant]
     Active Substance: CYCLOSERINE
     Dosage: UNK
     Route: 065
     Dates: start: 20200219
  11. NEVIRAPINE. [Concomitant]
     Active Substance: NEVIRAPINE
     Dosage: 200 MG
     Route: 065
     Dates: start: 20200108
  12. BEDAQUILINE [Interacting]
     Active Substance: BEDAQUILINE
     Dosage: UNK
     Route: 048
     Dates: start: 20200219
  13. FLUCONAZOLE. [Concomitant]
     Active Substance: FLUCONAZOLE
     Indication: PRODUCT USED FOR UNKNOWN INDICATION
     Dosage: 150 MG
     Route: 065
     Dates: start: 20191218, end: 20200214
  14. CLOFAZIMINE [Interacting]
     Active Substance: CLOFAZIMINE
     Dosage: UNK
     Route: 048
     Dates: start: 20200212, end: 20200213
  15. BEDAQUILINE [Interacting]
     Active Substance: BEDAQUILINE
     Dosage: UNK
     Route: 048
     Dates: start: 20200212, end: 20200213
  16. CLOFAZIMINE [Interacting]
     Active Substance: CLOFAZIMINE
     Dosage: UNK
     Route: 048
     Dates: start: 20200219
  17. BEDAQUILINE [Interacting]
     Active Substance: BEDAQUILINE
     Indication: TUBERCULOSIS
     Dosage: 200
     Route: 048
     Dates: start: 20191218, end: 20200206
  18. COTRIMOXAZOLE [Concomitant]
     Active Substance: SULFAMETHOXAZOLE\TRIMETHOPRIM
     Dosage: 480 MG
     Route: 065
     Dates: start: 20200420, end: 20200519
  19. LINEZOLID. [Concomitant]
     Active Substance: LINEZOLID
     Indication: PRODUCT USED FOR UNKNOWN INDICATION
     Dosage: UNK
     Route: 065
     Dates: start: 20191218, end: 20200206
  20. LINEZOLID. [Concomitant]
     Active Substance: LINEZOLID
     Dosage: UNK
     Route: 065
     Dates: start: 20200212, end: 20200213
  21. COTRIMOXAZOLE [Concomitant]
     Active Substance: SULFAMETHOXAZOLE\TRIMETHOPRIM
     Indication: PRODUCT USED FOR UNKNOWN INDICATION
     Dosage: 480 MG
     Route: 065
     Dates: start: 20191218, end: 20190214
  22. EMTRICITABINE [Concomitant]
     Active Substance: EMTRICITABINE
     Indication: PRODUCT USED FOR UNKNOWN INDICATION
     Dosage: 300/200 MG
     Route: 065
     Dates: start: 20191212

REACTIONS (3)
  - Dyspnoea [Unknown]
  - Asthenia [Unknown]
  - Electrocardiogram QT prolonged [Recovered/Resolved]

NARRATIVE: CASE EVENT DATE: 20200204
